FAERS Safety Report 10165688 (Version 2)
Quarter: 2014Q2

REPORT INFORMATION
  Report Type: Spontaneous
  Country: GB (occurrence: GB)
  Receive Date: 20140510
  Receipt Date: 20140516
  Transmission Date: 20141212
  Serious: Yes (Hospitalization)
  Sender: FDA-Public Use
  Company Number: GB-009507513-1405GBR003465

PATIENT
  Sex: Male

DRUGS (1)
  1. CLOTRIMAZOLE [Suspect]
     Indication: FUNGAL INFECTION

REACTIONS (5)
  - Cellulitis [Unknown]
  - Dermatitis [Unknown]
  - Pruritus [Unknown]
  - Erythema [Unknown]
  - Lip swelling [Unknown]
